FAERS Safety Report 21918261 (Version 2)
Quarter: 2023Q2

REPORT INFORMATION
  Report Type: Spontaneous
  Country: US (occurrence: US)
  Receive Date: 20230127
  Receipt Date: 20230627
  Transmission Date: 20230722
  Serious: Yes (Other)
  Sender: FDA-Public Use
  Company Number: US-JNJFOC-20230149232

PATIENT
  Age: 3 Year
  Sex: Female

DRUGS (5)
  1. TYLENOL REGULAR STRENGTH [Suspect]
     Active Substance: ACETAMINOPHEN
     Indication: Pain
     Dosage: 7 OR MORE TIMES PER WEEK IN ALL TRIMESTER.
     Route: 064
     Dates: start: 200611, end: 200708
  2. TYLENOL EXTRA STRENGTH [Suspect]
     Active Substance: ACETAMINOPHEN
     Indication: Pain
     Dosage: 7 OR MORE TIMES PER WEEK IN ALL TRIMESTER.
     Route: 064
     Dates: start: 200611, end: 200708
  3. TYLENOL EXTRA STRENGTH [Suspect]
     Active Substance: ACETAMINOPHEN
     Indication: Pain
     Dosage: 7 OR MORE TIMES PER WEEK IN ALL TRIMESTER.
     Route: 064
     Dates: start: 200611, end: 200708
  4. ACETAMINOPHEN [Suspect]
     Active Substance: ACETAMINOPHEN
     Indication: Pain
     Dosage: 7 OR MORE TIMES PER WEEK IN ALL TRIMESTER.
     Route: 064
     Dates: start: 200611, end: 200708
  5. ACETAMINOPHEN [Suspect]
     Active Substance: ACETAMINOPHEN
     Indication: Pain
     Dosage: 7 OR MORE TIMES PER WEEK IN ALL TRIMESTER.
     Route: 064
     Dates: start: 200611, end: 200708

REACTIONS (3)
  - Attention deficit hyperactivity disorder [Unknown]
  - Autism spectrum disorder [Unknown]
  - Foetal exposure during pregnancy [Unknown]

NARRATIVE: CASE EVENT DATE: 20110101
